FAERS Safety Report 8279960 (Version 11)
Quarter: 2012Q4

REPORT INFORMATION
  Report Type: Report from Study
  Country: JP (occurrence: JP)
  Receive Date: 20111208
  Receipt Date: 20121204
  Transmission Date: 20130627
  Serious: Yes (Hospitalization)
  Sender: FDA-Public Use
  Company Number: PHHO2010JP03855

PATIENT
  Age: 60 Year
  Sex: Male
  Weight: 76 kg

DRUGS (56)
  1. ALISKIREN [Suspect]
     Indication: CARDIOVASCULAR DISORDER
     Route: 048
     Dates: start: 20080610, end: 20111226
  2. ZETIA [Concomitant]
     Indication: HYPERLIPIDAEMIA
     Dosage: 10 mg, UNK
     Route: 048
     Dates: start: 20080212
  3. ACTOS [Concomitant]
     Indication: TYPE 2 DIABETES MELLITUS
     Dosage: 30 mg, QD
     Route: 048
     Dates: start: 20030529
  4. ACTOS [Concomitant]
     Dosage: 30 mg, QD
     Route: 048
     Dates: start: 20110929
  5. ACTOS [Concomitant]
     Dosage: 15 mg, QD
     Route: 048
     Dates: start: 20120825, end: 20120825
  6. BLOPRESS [Concomitant]
     Indication: HYPERTENSION
     Dosage: 8 mg, UNK
     Route: 048
     Dates: start: 20060620
  7. AMLODIPINE [Concomitant]
     Indication: HYPERTENSION
     Dosage: 5 mg, UNK
     Route: 048
     Dates: start: 20091201
  8. ASPIRIN [Concomitant]
     Indication: PROPHYLAXIS
     Dosage: 81 mg, UNK
     Route: 048
     Dates: start: 20100218
  9. PLAVIX [Concomitant]
     Indication: PROPHYLAXIS
     Dosage: 75 mg, UNK
     Route: 048
     Dates: start: 20100218
  10. PLAVIX [Concomitant]
     Dosage: 75 mg, QD
     Route: 048
     Dates: start: 20120819
  11. NIZATIDINE [Concomitant]
     Indication: GASTRITIS
     Dosage: 300 mg, UNK
     Route: 048
     Dates: start: 20100218
  12. NOVORAPID [Concomitant]
     Indication: TYPE 2 DIABETES MELLITUS
     Dosage: 18 IU, UNK
     Route: 058
     Dates: start: 20090826
  13. NOVORAPID [Concomitant]
     Dosage: 9 to 18 IU daily
     Route: 058
  14. EPADEL [Concomitant]
     Indication: HYPERLIPIDAEMIA
     Dosage: 1800 mg, UNK
     Route: 048
     Dates: start: 20100311
  15. EPADEL [Concomitant]
     Dosage: 2700 mg, QD
     Route: 048
     Dates: start: 20120823
  16. PIOGLITAZONE HYDROCHLORIDE [Concomitant]
     Indication: TYPE 2 DIABETES MELLITUS
     Dosage: 30 mg, UNK
     Route: 048
     Dates: start: 20110929
  17. TAKEPRON [Concomitant]
     Indication: PROPHYLAXIS AGAINST GASTROINTESTINAL ULCER
     Dosage: 15 mg, UNK
     Route: 048
     Dates: start: 20120819
  18. LIPITOR [Concomitant]
     Indication: HYPERLIPIDAEMIA
     Dosage: 20 mg, UNK
     Route: 048
     Dates: start: 20120819
  19. BAYASPIRIN [Concomitant]
  20. DIART [Concomitant]
     Indication: CARDIAC FAILURE
     Dosage: 60 mg, UNK
     Route: 048
     Dates: start: 20120821
  21. ALDACTONE-A [Concomitant]
     Indication: CARDIAC FAILURE
     Dosage: 25 mg, UNK
     Route: 048
     Dates: start: 20120821
  22. ALDACTONE-A [Concomitant]
     Dosage: 25 mg, UNK
     Route: 048
  23. BASEN [Concomitant]
     Indication: TYPE 2 DIABETES MELLITUS
     Dosage: 0.6 mg, UNK
     Route: 048
     Dates: start: 20120821
  24. ARTIST [Concomitant]
     Indication: CARDIAC FAILURE
     Dosage: 5 mg, UNK
     Route: 048
     Dates: start: 20120821
  25. ARTIST [Concomitant]
     Indication: HYPERTENSION
     Dosage: 10 mg, UNK
     Route: 048
     Dates: start: 20120821
  26. ARTIST [Concomitant]
     Dosage: 15 mg, UNK
     Route: 048
     Dates: start: 20120821
  27. ARTIST [Concomitant]
     Dosage: 20 mg, UNK
     Route: 048
     Dates: start: 20120821
  28. CETAPRIL [Concomitant]
     Indication: HYPERTENSION
     Dosage: 12.5 mg, UNK
     Route: 048
     Dates: start: 20120821
  29. CETAPRIL [Concomitant]
     Dosage: 25 mg, UNK
     Route: 048
     Dates: start: 20120821
  30. CETAPRIL [Concomitant]
     Dosage: 50 mg, UNK
     Route: 048
     Dates: start: 20120821
  31. NESINA [Concomitant]
     Indication: TYPE 2 DIABETES MELLITUS
     Dosage: 12.5 mg, UNK
     Route: 048
     Dates: start: 20120831
  32. NOVOLIN N [Concomitant]
     Indication: TYPE 2 DIABETES MELLITUS
     Dosage: UNK
     Route: 058
     Dates: start: 20120819
  33. NOVOLIN N [Concomitant]
     Dosage: UNK
     Route: 058
     Dates: start: 20120828
  34. LUPRAC [Concomitant]
     Indication: CARDIAC FAILURE
     Dosage: 2 mg, UNK
     Route: 048
  35. LUPRAC [Concomitant]
     Dosage: 4 mg, Daily
     Route: 048
     Dates: start: 20120909, end: 20120913
  36. LUPRAC [Concomitant]
     Dosage: 2 mg, Daily
     Route: 048
     Dates: start: 20120914
  37. NITROL [Concomitant]
     Indication: CARDIAC FAILURE
     Dosage: UNK
     Dates: start: 20120819, end: 20120904
  38. WARFARIN [Concomitant]
     Indication: ANGINA PECTORIS
     Dosage: 2 mg, UNK
     Route: 048
     Dates: start: 20120928
  39. WARFARIN [Concomitant]
     Dosage: 2.5 mg, UNK
     Route: 048
  40. WARFARIN [Concomitant]
     Dosage: 2 mg, UNK
     Route: 048
  41. WARFARIN [Concomitant]
     Dosage: 2.5 mg, UNK
     Route: 048
     Dates: start: 20121007
  42. NOVOLIN R [Concomitant]
     Indication: TYPE 2 DIABETES MELLITUS
     Dosage: UNK
     Route: 058
     Dates: start: 20120828, end: 20120918
  43. SEVOFRANE [Concomitant]
     Indication: GENERAL ANAESTHESIA
     Dosage: UNK
     Dates: start: 20120927, end: 20120927
  44. DORMICUM                                /GFR/ [Concomitant]
     Indication: ANAESTHETIC PREMEDICATION
     Dosage: 3.0 mg, UNK
     Dates: start: 20120927, end: 20120927
  45. FENTANYL [Concomitant]
     Indication: PROCEDURAL PAIN
     Dosage: 500 ug, UNK
     Dates: start: 20120927, end: 20120927
  46. ESLAX [Concomitant]
     Indication: HYPOTONIA
     Dosage: 150 mg, UNK
     Dates: start: 20120927, end: 20120927
  47. HEPARIN [Concomitant]
     Indication: THROMBOSIS PROPHYLAXIS
     Dosage: UNK
     Dates: start: 20120927, end: 20120927
  48. EPHEDRIN [Concomitant]
     Indication: PROCEDURAL HYPOTENSION
     Dosage: 8 mg, UNK
     Dates: start: 20120927, end: 20120927
  49. NEOSYNESIN [Concomitant]
     Indication: BLOOD PRESSURE DECREASED
     Dosage: 0.6 mg, UNK
     Dates: start: 20120927, end: 20120927
  50. SIGMART [Concomitant]
     Indication: ANGINA PECTORIS
     Dosage: 20.35 mg, UNK
     Dates: start: 20120927, end: 20120927
  51. HERBESSER [Concomitant]
     Indication: ANGINA PECTORIS
     Dosage: 13.3mg, 25.2mg, 31.55mg
     Dates: start: 20120927, end: 20120928
  52. SULBACILLIN [Concomitant]
     Indication: INFECTION PROPHYLAXIS
     Dosage: 3.0g, 1.5g
     Dates: start: 20120927, end: 20120928
  53. SULBACILLIN [Concomitant]
     Indication: INFECTION
  54. MUCOSTA [Concomitant]
     Indication: PROPHYLAXIS AGAINST GASTROINTESTINAL ULCER
     Dosage: UNK
     Route: 048
     Dates: start: 20120928, end: 20121007
  55. MINOPEN [Concomitant]
     Indication: INFECTION PROPHYLAXIS
     Dosage: 200 mg, UNK
     Route: 048
     Dates: start: 20121006, end: 20121010
  56. LOXONIN [Concomitant]
     Indication: POSTOPERATIVE ANALGESIA
     Dosage: UNK
     Route: 048
     Dates: start: 20120928, end: 20121007

REACTIONS (5)
  - Large intestine polyp [Recovered/Resolved]
  - Coronary artery occlusion [Recovered/Resolved]
  - Chest pain [Recovered/Resolved]
  - Angina pectoris [Recovered/Resolved]
  - Cardiac failure [Recovered/Resolved]
